FAERS Safety Report 25919496 (Version 1)
Quarter: 2025Q4

REPORT INFORMATION
  Report Type: Spontaneous
  Country: GB (occurrence: GB)
  Receive Date: 20251014
  Receipt Date: 20251014
  Transmission Date: 20260118
  Serious: Yes (Other)
  Sender: NOVO NORDISK
  Company Number: GB-MHRA-TPP17895575C126505YC1758815399919

PATIENT
  Age: 64 Year
  Sex: Female
  Weight: 99 kg

DRUGS (14)
  1. RYBELSUS [Suspect]
     Active Substance: SEMAGLUTIDE
     Indication: Product used for unknown indication
     Dosage: 3 MG
     Route: 048
     Dates: start: 20250806
  2. RYBELSUS [Suspect]
     Active Substance: SEMAGLUTIDE
     Dosage: 7 MG
     Route: 048
  3. SEMAGLUTIDE [Concomitant]
     Active Substance: SEMAGLUTIDE
     Indication: Ill-defined disorder
     Dosage: UNK, QD (TAKE ONE DAILY)
     Dates: start: 20250715, end: 20250814
  4. TRIMOVATE [Concomitant]
     Active Substance: CLOBETASONE BUTYRATE\NYSTATIN\OXYTETRACYCLINE CALCIUM
     Indication: Ill-defined disorder
     Dosage: UNK (APPLY TWICE DAILY FOR UP TO 3 WEEKS)
     Dates: start: 20250813, end: 20250903
  5. CARBIDOPA\LEVODOPA [Concomitant]
     Active Substance: CARBIDOPA\LEVODOPA
     Indication: Ill-defined disorder
     Dosage: UNK (TAKE ONE TABLET FOUR TIMES A DAY)
     Dates: start: 20230314
  6. FINETEST LITE [Concomitant]
     Indication: Ill-defined disorder
     Dosage: UNK(USE AS DIRECTED)
     Dates: start: 20230314
  7. GLICLAZIDE [Concomitant]
     Active Substance: GLICLAZIDE
     Indication: Ill-defined disorder
     Dosage: UNK(TAKE TWO WITH BREAKFAST AND TWO WITH MAIN MEAL )
     Dates: start: 20230314
  8. GREENLAN [Concomitant]
     Indication: Ill-defined disorder
     Dosage: UNK(USE AS DIRECTED)
     Dates: start: 20230314
  9. LORATADINE [Concomitant]
     Active Substance: LORATADINE
     Indication: Ill-defined disorder
     Dosage: UNK(TAKE ONE DAILY)
     Dates: start: 20230314
  10. PROPRANOLOL [Concomitant]
     Active Substance: PROPRANOLOL HYDROCHLORIDE
     Indication: Ill-defined disorder
     Dosage: UNK, QD (TAKE ONE DAILY)
     Dates: start: 20230314
  11. CITALOPRAM [Concomitant]
     Active Substance: CITALOPRAM
     Indication: Ill-defined disorder
     Dosage: UNK(TAKE TWO TABLETS ONCE DAILY)
     Dates: start: 20230518
  12. OMEPRAZOLE [Concomitant]
     Active Substance: OMEPRAZOLE
     Indication: Ill-defined disorder
     Dosage: UNK,QD (TAKE ONE DAILY)
     Dates: start: 20240411
  13. BENSERAZIDE HYDROCHLORIDE\LEVODOPA [Concomitant]
     Active Substance: BENSERAZIDE HYDROCHLORIDE\LEVODOPA
     Indication: Ill-defined disorder
     Dosage: UNK(TAKE ONE TABLET IN THE MORNING AND UP TO 3 OTHE..)
     Dates: start: 20240717
  14. DAPAGLIFLOZIN [Concomitant]
     Active Substance: DAPAGLIFLOZIN
     Indication: Ill-defined disorder
     Dosage: UNK(TAKE ONE DAILY)
     Dates: start: 20250806

REACTIONS (1)
  - Dyspnoea [Recovered/Resolved]

NARRATIVE: CASE EVENT DATE: 20250806
